FAERS Safety Report 12157172 (Version 1)
Quarter: 2016Q1

REPORT INFORMATION
  Report Type: Spontaneous
  Country: SE (occurrence: SE)
  Receive Date: 20160308
  Receipt Date: 20160308
  Transmission Date: 20160526
  Serious: Yes (Hospitalization, Other)
  Sender: FDA-Public Use
  Company Number: SE-ABBVIE-16K-150-1572312-00

PATIENT
  Age: 56 Year
  Sex: Female

DRUGS (3)
  1. HUMIRA [Suspect]
     Active Substance: ADALIMUMAB
     Indication: JUVENILE IDIOPATHIC ARTHRITIS
     Route: 058
     Dates: start: 20151115, end: 201601
  2. ORUDIS [Concomitant]
     Active Substance: KETOPROFEN
     Indication: PRODUCT USED FOR UNKNOWN INDICATION
  3. OMEPRAZOL [Concomitant]
     Active Substance: OMEPRAZOLE
     Indication: PRODUCT USED FOR UNKNOWN INDICATION

REACTIONS (13)
  - Amyotrophic lateral sclerosis [Unknown]
  - Paraesthesia [Recovered/Resolved]
  - Viral myelitis [Recovered/Resolved]
  - Musculoskeletal pain [Not Recovered/Not Resolved]
  - Neoplasm malignant [Unknown]
  - Burning sensation [Recovered/Resolved]
  - Pain in extremity [Not Recovered/Not Resolved]
  - Stress [Unknown]
  - Muscular weakness [Recovered/Resolved]
  - Hypoaesthesia [Not Recovered/Not Resolved]
  - Back pain [Recovered/Resolved]
  - Paraesthesia oral [Not Recovered/Not Resolved]
  - Multiple sclerosis [Unknown]

NARRATIVE: CASE EVENT DATE: 201512
